FAERS Safety Report 19471820 (Version 1)
Quarter: 2021Q2

REPORT INFORMATION
  Report Type: Other
  Country: TW (occurrence: TW)
  Receive Date: 20210629
  Receipt Date: 20210629
  Transmission Date: 20210717
  Serious: Yes (Other)
  Sender: FDA-Public Use
  Company Number: TW-ROCHE-2858991

PATIENT
  Age: 74 Year
  Sex: Male

DRUGS (1)
  1. LUCENTIS [Suspect]
     Active Substance: RANIBIZUMAB
     Indication: RETINAL VEIN OCCLUSION
     Dosage: 0.5 MG, PRN (AS NEEDED)
     Route: 047
     Dates: start: 2020

REACTIONS (2)
  - Retinal thickening [Unknown]
  - Eye colour change [Unknown]

NARRATIVE: CASE EVENT DATE: 20210518
